FAERS Safety Report 19191055 (Version 1)
Quarter: 2021Q2

REPORT INFORMATION
  Report Type: Spontaneous
  Country: US (occurrence: US)
  Receive Date: 20210428
  Receipt Date: 20210428
  Transmission Date: 20210717
  Serious: No
  Sender: FDA-Public Use
  Company Number: US-ELI_LILLY_AND_COMPANY-US202104008016

PATIENT
  Age: 82 Year
  Sex: Male

DRUGS (2)
  1. HUMALOG [Suspect]
     Active Substance: INSULIN LISPRO
     Indication: TYPE 2 DIABETES MELLITUS
     Dosage: UNK UNK, UNKNOWN
     Route: 065
  2. COVID?19 VACCINE NOS. [Suspect]
     Active Substance: COVID-19 VACCINE NOS
     Indication: COVID-19
     Dosage: UNK, UNKNOWN
     Route: 065

REACTIONS (11)
  - Nerve compression [Recovered/Resolved]
  - Adrenal neoplasm [Unknown]
  - Emotional distress [Recovered/Resolved]
  - Arthralgia [Recovered/Resolved]
  - Cardiac disorder [Unknown]
  - Hypertension [Unknown]
  - Tremor [Not Recovered/Not Resolved]
  - Fatigue [Recovered/Resolved]
  - Asthenia [Recovered/Resolved]
  - Lethargy [Recovered/Resolved]
  - Arthritis [Recovered/Resolved]
